FAERS Safety Report 10204448 (Version 1)
Quarter: 2014Q2

REPORT INFORMATION
  Report Type: Spontaneous
  Country: US (occurrence: US)
  Receive Date: 20140529
  Receipt Date: 20140529
  Transmission Date: 20141212
  Serious: No
  Sender: FDA-Public Use
  Company Number: US-SANOFI-AVENTIS-2013SA062444

PATIENT
  Age: 62 Year
  Sex: Male
  Weight: 74.3 kg

DRUGS (6)
  1. LANTUS [Suspect]
     Indication: DIABETES MELLITUS
     Dosage: DOSE:20 UNIT(S)
     Route: 058
     Dates: start: 20130515, end: 20130526
  2. NOVOLOG [Concomitant]
  3. ATENOLOL [Concomitant]
     Indication: BLOOD PRESSURE
     Dosage: DOSE 25
     Route: 065
     Dates: start: 2012
  4. MULTIVITAMINS [Concomitant]
     Route: 065
  5. VITAMIN D [Concomitant]
     Indication: BONE DISORDER
     Dosage: DOSE:1000
     Route: 065
  6. OMEPRAZOLE [Concomitant]
     Indication: GASTRIC DISORDER
     Dosage: DOSE: 20
     Route: 065
     Dates: start: 2010

REACTIONS (5)
  - Pyrexia [Recovered/Resolved]
  - Chapped lips [Recovered/Resolved]
  - Pruritus generalised [Recovered/Resolved]
  - Lip swelling [Recovered/Resolved]
  - Erythema [Recovered/Resolved]
